FAERS Safety Report 7477911-6 (Version None)
Quarter: 2011Q2

REPORT INFORMATION
  Report Type: 
  Country: None (occurrence: None)
  Receive Date: 20110513
  Receipt Date: 20110211
  Transmission Date: 20111010
  Serious: No
  Sender: FDA-Public Use
  Company Number: US-BAYER-2011-015018

PATIENT
  Age: 43 Year
  Sex: Female

DRUGS (2)
  1. MAGNEVIST [Suspect]
     Indication: MULTIPLE SCLEROSIS
  2. MAGNEVIST [Suspect]
     Indication: NUCLEAR MAGNETIC RESONANCE IMAGING BRAIN
     Dosage: 20 ML, ONCE
     Dates: start: 20110211, end: 20110211

REACTIONS (2)
  - RASH MACULAR [None]
  - URTICARIA [None]
